FAERS Safety Report 20835069 (Version 7)
Quarter: 2024Q4

REPORT INFORMATION
  Report Type: Report from Study
  Country: US (occurrence: US)
  Receive Date: 20220516
  Receipt Date: 20241016
  Transmission Date: 20250114
  Serious: Yes (Other)
  Sender: NOVARTIS
  Company Number: US-NOVARTISTESTPH-NVSC2022US112459

PATIENT
  Age: 84 Year
  Sex: Female

DRUGS (2)
  1. AFINITOR [Suspect]
     Active Substance: EVEROLIMUS
     Indication: Carcinoid tumour
     Dosage: 2.5 MG
     Route: 048
     Dates: start: 20220322
  2. AFINITOR [Suspect]
     Active Substance: EVEROLIMUS
     Dosage: 10 MG
     Route: 048

REACTIONS (9)
  - Craniofacial fracture [Recovering/Resolving]
  - Thrombocytopenia [Unknown]
  - Platelet count abnormal [Recovered/Resolved]
  - Platelet count abnormal [Recovered/Resolved]
  - Fall [Unknown]
  - Tremor [Unknown]
  - Upper limb fracture [Recovering/Resolving]
  - Platelet count increased [Unknown]
  - Wrong technique in product usage process [Unknown]

NARRATIVE: CASE EVENT DATE: 20220408
